APPROVED DRUG PRODUCT: ETOMIDATE
Active Ingredient: ETOMIDATE
Strength: 2MG/ML
Dosage Form/Route: INJECTABLE;INJECTION
Application: A202360 | Product #001 | TE Code: AP
Applicant: ZYDUS PHARMACEUTICALS USA INC
Approved: Jul 18, 2014 | RLD: No | RS: No | Type: RX